FAERS Safety Report 16151969 (Version 4)
Quarter: 2019Q2

REPORT INFORMATION
  Report Type: Report from Study
  Country: US (occurrence: US)
  Receive Date: 20190403
  Receipt Date: 20190509
  Transmission Date: 20190711
  Serious: Yes (Hospitalization)
  Sender: FDA-Public Use
  Company Number: US-ROCHE-2291380

PATIENT
  Age: 74 Year
  Sex: Male
  Weight: 90 kg

DRUGS (15)
  1. VITAMIN B12 [Concomitant]
     Active Substance: CYANOCOBALAMIN
     Indication: VITAMIN B12 DEFICIENCY
     Route: 048
     Dates: start: 20150209
  2. GLUCOPHAGE [Concomitant]
     Active Substance: METFORMIN HYDROCHLORIDE
     Indication: DIABETES MELLITUS
     Route: 048
     Dates: start: 20141020
  3. AMLODIPINE [Concomitant]
     Active Substance: AMLODIPINE BESYLATE
     Indication: HYPERTENSION
     Route: 048
     Dates: start: 20141016
  4. OMEPRAZOLE;SODIUM BICARBONATE [Concomitant]
     Active Substance: OMEPRAZOLE\SODIUM BICARBONATE
     Indication: DYSPEPSIA
     Route: 048
     Dates: start: 20171108
  5. ROSUVASTATIN. [Concomitant]
     Active Substance: ROSUVASTATIN
     Indication: HYPERLIPIDAEMIA
     Route: 048
     Dates: start: 20180502
  6. TRIAMCINOLONE [Concomitant]
     Active Substance: TRIAMCINOLONE
     Indication: RASH MACULO-PAPULAR
     Route: 061
  7. PREDNISONE. [Concomitant]
     Active Substance: PREDNISONE
     Route: 048
     Dates: start: 20190329
  8. NATEGLINIDE. [Concomitant]
     Active Substance: NATEGLINIDE
     Indication: HYPERGLYCAEMIA
     Route: 048
     Dates: start: 20190326, end: 20190329
  9. COBIMETINIB. [Suspect]
     Active Substance: COBIMETINIB
     Indication: MALIGNANT MELANOMA
     Dosage: ON 10/FEB/2019, RECEIVED MOST RECENT DOSE OF COBIMETINIB 10 MG.
     Route: 048
     Dates: start: 20180502
  10. ATEZOLIZUMAB. [Suspect]
     Active Substance: ATEZOLIZUMAB
     Indication: MALIGNANT MELANOMA
     Dosage: DAYS 1 AND 15 OF EACH 28-DAY CYCLE?ON 06/FEB/2019, RECEIVED MOST RECENT DOSE OF ATEZOLIZUMAB 40 MG.
     Route: 042
     Dates: start: 20180502
  11. CHOLECALCIFEROL [Concomitant]
     Active Substance: CHOLECALCIFEROL
     Route: 048
     Dates: start: 20171122
  12. ADVIL [IBUPROFEN] [Concomitant]
     Active Substance: IBUPROFEN
     Route: 048
     Dates: start: 20190207
  13. INSULIN GLARGINE [Concomitant]
     Active Substance: INSULIN GLARGINE
     Route: 058
     Dates: start: 20190329
  14. CARBOXYMETHYLCELLULOSE [Concomitant]
     Active Substance: CARBOXYMETHYLCELLULOSE
     Indication: DRY EYE
     Route: 065
     Dates: start: 20180822
  15. OMEPRAZOLE;SODIUM BICARBONATE [Concomitant]
     Active Substance: OMEPRAZOLE\SODIUM BICARBONATE
     Indication: GASTROOESOPHAGEAL REFLUX DISEASE

REACTIONS (3)
  - Dyspnoea [Recovered/Resolved]
  - Hypocalcaemia [Recovered/Resolved]
  - Pneumonitis [Recovering/Resolving]

NARRATIVE: CASE EVENT DATE: 20190325
